FAERS Safety Report 9114828 (Version 1)
Quarter: 2013Q1

REPORT INFORMATION
  Report Type: Spontaneous
  Country: US (occurrence: None)
  Receive Date: 20130129
  Receipt Date: 20130129
  Transmission Date: 20140127
  Serious: No
  Sender: FDA-Public Use
  Company Number: US-010716

PATIENT
  Age: 35 Year
  Sex: Female

DRUGS (3)
  1. NOVAREL [Suspect]
     Indication: IN VITRO FERTILISATION
  2. GONAL-F [Suspect]
     Indication: IN VITRO FERTILISATION
  3. PERGONAL [Suspect]
     Indication: IN VITRO FERTILISATION

REACTIONS (17)
  - Dyspnoea [None]
  - Orthopnoea [None]
  - Pleuritic pain [None]
  - Breath sounds abnormal [None]
  - Tachycardia [None]
  - Leukocytosis [None]
  - Haemothorax [None]
  - Pneumothorax [None]
  - Endometriosis [None]
  - Blister [None]
  - Gastroenteritis [None]
  - Transaminases increased [None]
  - Hepatomegaly [None]
  - Diaphragmatic hernia [None]
  - Postpartum disorder [None]
  - Pregnancy [None]
  - Hepatic congestion [None]
